FAERS Safety Report 9000972 (Version 1)
Quarter: 2013Q1

REPORT INFORMATION
  Report Type: Spontaneous
  Country: US (occurrence: None)
  Receive Date: 20130103
  Receipt Date: 20130103
  Transmission Date: 20140127
  Serious: No
  Sender: FDA-Public Use
  Company Number: None

PATIENT
  Age: 73 Year
  Sex: Female
  Weight: 78.93 kg

DRUGS (1)
  1. GEMFIBROZIL [Suspect]
     Indication: BLOOD CHOLESTEROL
     Dates: start: 20121119, end: 20121231

REACTIONS (6)
  - Nausea [None]
  - Myalgia [None]
  - Dizziness [None]
  - Depression [None]
  - Flushing [None]
  - Abdominal pain [None]
